FAERS Safety Report 21872343 (Version 1)
Quarter: 2023Q1

REPORT INFORMATION
  Report Type: Spontaneous
  Country: US (occurrence: US)
  Receive Date: 20230117
  Receipt Date: 20230117
  Transmission Date: 20230418
  Serious: Yes (Hospitalization, Other)
  Sender: FDA-Public Use
  Company Number: US-BAYER-2023A001767

PATIENT
  Age: 91 Year
  Sex: Female
  Weight: 71.65 kg

DRUGS (16)
  1. BAYER LOW DOSE [Suspect]
     Active Substance: ASPIRIN
     Dosage: UNK
  2. JAKAFI [Suspect]
     Active Substance: RUXOLITINIB
     Indication: Myelofibrosis
     Dosage: 30 MG, QD
     Route: 048
     Dates: start: 20131004
  3. JAKAFI [Suspect]
     Active Substance: RUXOLITINIB
     Indication: Myelofibrosis
     Dosage: 15 MG, BID
     Route: 048
     Dates: start: 20131003
  4. JAKAFI [Suspect]
     Active Substance: RUXOLITINIB
     Indication: Myelofibrosis
     Dosage: 10 MG, BID
     Route: 048
     Dates: start: 20221011
  5. OMEPRAZOLE [Suspect]
     Active Substance: OMEPRAZOLE
     Indication: Product used for unknown indication
  6. LASIX [Concomitant]
     Active Substance: FUROSEMIDE
  7. FLUCONAZOLE [Concomitant]
     Active Substance: FLUCONAZOLE
     Dosage: UNK
     Dates: start: 2016
  8. ACYCLOVIR [Concomitant]
     Active Substance: ACYCLOVIR
  9. XALATAN [Concomitant]
     Active Substance: LATANOPROST
  10. VITAMIN D3 [Concomitant]
     Active Substance: CHOLECALCIFEROL
  11. TRETINOIN [Concomitant]
     Active Substance: TRETINOIN
  12. LORAZEPAM [Concomitant]
     Active Substance: LORAZEPAM
  13. POTASSIUM [Concomitant]
     Active Substance: POTASSIUM
  14. CALCIUM CARBONATE [Concomitant]
     Active Substance: CALCIUM CARBONATE
  15. TYLENOL [Concomitant]
     Active Substance: ACETAMINOPHEN
  16. IBUPROFEN [Concomitant]
     Active Substance: IBUPROFEN

REACTIONS (7)
  - Syncope [None]
  - Respiratory disorder [None]
  - Weight decreased [None]
  - Epistaxis [None]
  - Gastrooesophageal reflux disease [None]
  - Product dose omission issue [None]
  - Diarrhoea [None]

NARRATIVE: CASE EVENT DATE: 20210928
